FAERS Safety Report 18041602 (Version 3)
Quarter: 2023Q2

REPORT INFORMATION
  Report Type: Spontaneous
  Country: US (occurrence: US)
  Receive Date: 20200720
  Receipt Date: 20230615
  Transmission Date: 20230722
  Serious: No
  Sender: FDA-Public Use
  Company Number: US-BIOGEN-2016BI00310254

PATIENT
  Sex: Male

DRUGS (1)
  1. TYSABRI [Suspect]
     Active Substance: NATALIZUMAB
     Indication: Multiple sclerosis
     Dosage: INFUSED OVER 1 HOUR
     Route: 050
     Dates: start: 20150605

REACTIONS (6)
  - Drug ineffective [Unknown]
  - Inappropriate schedule of product administration [Unknown]
  - Prescribed underdose [Recovered/Resolved]
  - Multiple sclerosis [Not Recovered/Not Resolved]
  - Personality change [Unknown]
  - Anger [Unknown]

NARRATIVE: CASE EVENT DATE: 20230101
